FAERS Safety Report 22213936 (Version 1)
Quarter: 2023Q2

REPORT INFORMATION
  Report Type: Spontaneous
  Country: US (occurrence: US)
  Receive Date: 20230414
  Receipt Date: 20230414
  Transmission Date: 20230722
  Serious: No
  Sender: FDA-Public Use
  Company Number: US-ALLERGAN-2237664US

PATIENT
  Sex: Female
  Weight: 63.5 kg

DRUGS (3)
  1. LILETTA [Suspect]
     Active Substance: LEVONORGESTREL
     Indication: Product used for unknown indication
     Dosage: 52 MG, SINGLE
     Route: 015
     Dates: start: 20220921, end: 20221019
  2. PHENTERMINE [Concomitant]
     Active Substance: PHENTERMINE
     Dosage: 15 MG, QD
     Route: 048
  3. FOLIC ACID\IRON\MINERALS\VITAMINS [Concomitant]
     Active Substance: FOLIC ACID\IRON\MINERALS\VITAMINS
     Dosage: UNK, QD
     Route: 048

REACTIONS (1)
  - Device expulsion [Recovered/Resolved]
